FAERS Safety Report 13389994 (Version 1)
Quarter: 2017Q1

REPORT INFORMATION
  Report Type: Spontaneous
  Country: US (occurrence: US)
  Receive Date: 20170331
  Receipt Date: 20170331
  Transmission Date: 20170429
  Serious: No
  Sender: FDA-Public Use
  Company Number: US-B.I. PHARMACEUTICALS,INC./RIDGEFIELD-2017-BI-017696

PATIENT
  Age: 84 Year
  Sex: Female

DRUGS (5)
  1. L-THYROXINE [Concomitant]
     Active Substance: LEVOTHYROXINE
     Indication: HYPOTHYROIDISM
     Dosage: ONE DAILY;  FORM STRENGTH: 88MCG; FORMULATION: TABLET
     Route: 048
  2. PRADAXA [Suspect]
     Active Substance: DABIGATRAN ETEXILATE MESYLATE
     Indication: ATRIAL FIBRILLATION
     Dosage: ONE CAPSULE BID;  FORM STRENGTH: 150 MG; FORMULATION: CAPSULE? ADMINISTRATION CORRECT? YES ?ACTION(S
     Route: 048
     Dates: start: 2013
  3. TOPROL XL [Concomitant]
     Active Substance: METOPROLOL SUCCINATE
     Indication: DRUG THERAPY
     Dosage: ONCE DAILY;  FORM STRENGTH: 25MG; FORMULATION: CAPLET
     Route: 048
  4. TRIAMCINOLONE [Concomitant]
     Active Substance: TRIAMCINOLONE
     Indication: PRURITUS
     Route: 065
  5. TRIAMTERENE - HCTZ [Concomitant]
     Indication: POLYURIA
     Dosage: ONCE DAILY;  FORM STRENGTH: 37/5/25MG; FORMULATION: CAPLET
     Route: 048

REACTIONS (4)
  - Arthralgia [Unknown]
  - Asthenia [Unknown]
  - Joint effusion [Unknown]
  - Nausea [Unknown]

NARRATIVE: CASE EVENT DATE: 20170315
